FAERS Safety Report 4554303-0 (Version None)
Quarter: 2005Q1

REPORT INFORMATION
  Report Type: 
  Country: None (occurrence: None)
  Receive Date: 20050118
  Receipt Date: 20050105
  Transmission Date: 20050727
  Serious: Yes (Hospitalization)
  Sender: FDA-Public Use
  Company Number: FR-GLAXOSMITHKLINE-B0363677A

PATIENT
  Age: 30 Year
  Sex: Female
  Weight: 84 kg

DRUGS (3)
  1. ZOPHREN [Suspect]
     Dosage: 8MG MONTHLY
     Route: 042
     Dates: start: 20040806, end: 20041105
  2. COSMEGEN [Suspect]
     Dosage: 1.42G MONTHLY
     Route: 042
     Dates: start: 20040806, end: 20041105
  3. VEPESID [Suspect]
     Dosage: 200MG MONTHLY
     Route: 042
     Dates: start: 20040806, end: 20041105

REACTIONS (7)
  - CHEST X-RAY ABNORMAL [None]
  - GENERAL PHYSICAL HEALTH DETERIORATION [None]
  - HYPOXIA [None]
  - INTERSTITIAL LUNG DISEASE [None]
  - LUNG DISORDER [None]
  - PYREXIA [None]
  - RESPIRATORY DISTRESS [None]
